FAERS Safety Report 5493826-7 (Version None)
Quarter: 2007Q4

REPORT INFORMATION
  Report Type: 
  Country: None (occurrence: None)
  Receive Date: 20071019
  Receipt Date: 20071003
  Transmission Date: 20080405
  Serious: Yes (Other)
  Sender: FDA-Public Use
  Company Number: 2007PV033529

PATIENT
  Age: 51 Year
  Sex: Male
  Weight: 90.7194 kg

DRUGS (4)
  1. SYMLIN [Suspect]
     Indication: TYPE 1 DIABETES MELLITUS
     Dosage: 15 MCG;BID;SC; 15 MCG;QD;SC;30 MCG;SC
     Route: 058
     Dates: start: 20070821, end: 20070901
  2. SYMLIN [Suspect]
     Indication: TYPE 1 DIABETES MELLITUS
     Dosage: 15 MCG;BID;SC; 15 MCG;QD;SC;30 MCG;SC
     Route: 058
     Dates: start: 20070901, end: 20071003
  3. HUMALOG [Concomitant]
  4. LANTUS [Concomitant]

REACTIONS (5)
  - CONVULSION [None]
  - HYPOGLYCAEMIA [None]
  - INCORRECT DOSE ADMINISTERED [None]
  - NAUSEA [None]
  - STOMACH DISCOMFORT [None]
